FAERS Safety Report 12579007 (Version 1)
Quarter: 2016Q3

REPORT INFORMATION
  Report Type: Spontaneous
  Country: CN (occurrence: CN)
  Receive Date: 20160721
  Receipt Date: 20160721
  Transmission Date: 20161109
  Serious: Yes (Life-Threatening)
  Sender: FDA-Public Use
  Company Number: PHHY2016CN098935

PATIENT
  Age: 53 Year
  Sex: Female
  Weight: 57 kg

DRUGS (2)
  1. SANDIMMUN [Suspect]
     Active Substance: CYCLOSPORINE
     Indication: TRANSPLANT REJECTION
     Dosage: 180 MG, QD
     Route: 041
     Dates: start: 20160320, end: 20160320
  2. SODIUM CHLORIDE. [Concomitant]
     Active Substance: SODIUM CHLORIDE
     Indication: PRODUCT USED FOR UNKNOWN INDICATION
     Dosage: 500 ML, QD
     Route: 041
     Dates: start: 20160320, end: 20160320

REACTIONS (1)
  - Anaphylactic shock [Recovered/Resolved]

NARRATIVE: CASE EVENT DATE: 20160320
